FAERS Safety Report 11902694 (Version 1)
Quarter: 2016Q1

REPORT INFORMATION
  Report Type: Report from Study
  Country: US (occurrence: US)
  Receive Date: 20160108
  Receipt Date: 20160108
  Transmission Date: 20160526
  Serious: No
  Sender: FDA-Public Use
  Company Number: US-ABBVIE-15P-163-1519002-00

PATIENT
  Age: 75 Year
  Sex: Female

DRUGS (3)
  1. RIBAVIRIN. [Suspect]
     Active Substance: RIBAVIRIN
     Indication: CHRONIC HEPATITIS C
     Route: 048
     Dates: start: 20150801, end: 20150818
  2. VIEKIRA PAK [Suspect]
     Active Substance: DASABUVIR\OMBITASVIR\PARITAPREVIR\RITONAVIR
     Indication: CHRONIC HEPATITIS C
     Route: 048
     Dates: start: 20150801
  3. RIBAVIRIN. [Suspect]
     Active Substance: RIBAVIRIN
     Route: 048
     Dates: start: 20150929

REACTIONS (8)
  - Rash [Unknown]
  - Genito-pelvic pain/penetration disorder [Unknown]
  - Urinary tract infection [Unknown]
  - Irritability [Unknown]
  - Oedema [Unknown]
  - Cough [Unknown]
  - Fatigue [Unknown]
  - Anaemia [Unknown]
